FAERS Safety Report 4268656-4 (Version None)
Quarter: 2004Q1

REPORT INFORMATION
  Report Type: 
  Country: None (occurrence: None)
  Receive Date: 20040112
  Receipt Date: 20040107
  Transmission Date: 20041129
  Serious: Yes (Other)
  Sender: FDA-Public Use
  Company Number: WAES 0401USA00508

PATIENT

DRUGS (2)
  1. DIURETIC (UNSPECIFIED) [Concomitant]
  2. COZAAR [Suspect]
     Dates: start: 20020101

REACTIONS (1)
  - KIDNEY TRANSPLANT REJECTION [None]
